FAERS Safety Report 24219162 (Version 2)
Quarter: 2024Q3

REPORT INFORMATION
  Report Type: Spontaneous
  Country: US (occurrence: US)
  Receive Date: 20240816
  Receipt Date: 20240821
  Transmission Date: 20241016
  Serious: Yes (Death, Other)
  Sender: GLAXOSMITHKLINE
  Company Number: US-GSKCCFUS-Case-02078774_AE-114942

PATIENT

DRUGS (1)
  1. NUCALA [Suspect]
     Active Substance: MEPOLIZUMAB
     Indication: Asthma
     Dosage: 100 MG

REACTIONS (2)
  - Cerebrovascular accident [Fatal]
  - Palliative care [Unknown]

NARRATIVE: CASE EVENT DATE: 20240606
